FAERS Safety Report 9287403 (Version 1)
Quarter: 2013Q2

REPORT INFORMATION
  Report Type: Spontaneous
  Country: US (occurrence: US)
  Receive Date: 20130514
  Receipt Date: 20130514
  Transmission Date: 20140414
  Serious: Yes (Hospitalization, Other)
  Sender: FDA-Public Use
  Company Number: US-AMGEN-USASP2013033188

PATIENT
  Age: 54 Year
  Sex: Female

DRUGS (3)
  1. ENBREL [Suspect]
     Indication: SYSTEMIC LUPUS ERYTHEMATOSUS
     Dosage: 50 MG, QWK
     Dates: start: 20021204, end: 201108
  2. METHOTREXATE [Concomitant]
     Dosage: UNK
     Dates: start: 2005, end: 2011
  3. PLAQUENIL                          /00072602/ [Concomitant]
     Dosage: 200 MG, BID
     Dates: start: 1990

REACTIONS (14)
  - Gastric bypass [Recovered/Resolved]
  - Post procedural complication [Recovered/Resolved]
  - Thyroid cancer [Recovered/Resolved]
  - Lupus pneumonitis [Recovered/Resolved]
  - Haemorrhage [Recovered/Resolved]
  - Haemoglobin decreased [Not Recovered/Not Resolved]
  - Haematocrit decreased [Not Recovered/Not Resolved]
  - Arthralgia [Not Recovered/Not Resolved]
  - Joint swelling [Not Recovered/Not Resolved]
  - Joint warmth [Not Recovered/Not Resolved]
  - Erythema [Not Recovered/Not Resolved]
  - Pain [Not Recovered/Not Resolved]
  - Pain in extremity [Not Recovered/Not Resolved]
  - Rheumatoid factor increased [Not Recovered/Not Resolved]
